FAERS Safety Report 25525320 (Version 2)
Quarter: 2025Q3

REPORT INFORMATION
  Report Type: Spontaneous
  Country: US (occurrence: US)
  Receive Date: 20250707
  Receipt Date: 20250715
  Transmission Date: 20251020
  Serious: Yes (Hospitalization, Other)
  Sender: CSL BEHRING
  Company Number: US-BEH-2025211121

PATIENT
  Age: 30 Year
  Sex: Male
  Weight: 85.4 kg

DRUGS (3)
  1. MIRCERA [Suspect]
     Active Substance: METHOXY POLYETHYLENE GLYCOL-EPOETIN BETA
     Indication: Nephrogenic anaemia
     Dosage: 150 ?G, QOW(EVERY 2 WEEKS)
     Route: 040
     Dates: start: 20250628, end: 20250628
  2. CALCITRIOL [Concomitant]
     Active Substance: CALCITRIOL
     Dates: start: 20250624
  3. VENOFER [Concomitant]
     Active Substance: IRON SUCROSE
     Dates: start: 20250628

REACTIONS (8)
  - Drug hypersensitivity [Unknown]
  - Dyspnoea [Unknown]
  - Chest pain [Unknown]
  - Feeling cold [Unknown]
  - Throat tightness [Unknown]
  - Dizziness [Unknown]
  - Hyperhidrosis [Unknown]
  - Pallor [Unknown]

NARRATIVE: CASE EVENT DATE: 20250628
